FAERS Safety Report 7293135-X (Version None)
Quarter: 2011Q1

REPORT INFORMATION
  Report Type: 
  Country: None (occurrence: None)
  Receive Date: 20110215
  Receipt Date: 20110210
  Transmission Date: 20110831
  Serious: Yes (Hospitalization)
  Sender: FDA-Public Use
  Company Number: DE-SANOFI-AVENTIS-2011SA008514

PATIENT
  Sex: Male

DRUGS (4)
  1. METFORMIN HYDROCHLORIDE [Concomitant]
     Route: 065
  2. AMARYL [Concomitant]
     Route: 065
  3. MARCUMAR [Concomitant]
     Route: 065
  4. MULTAQ [Suspect]
     Route: 065
     Dates: start: 20101020

REACTIONS (10)
  - TRANSAMINASES INCREASED [None]
  - BLOOD BILIRUBIN INCREASED [None]
  - BLOOD BILIRUBIN UNCONJUGATED INCREASED [None]
  - PERSONALITY CHANGE [None]
  - CHOLESTATIC LIVER INJURY [None]
  - BLOOD ALKALINE PHOSPHATASE INCREASED [None]
  - MULTI-ORGAN FAILURE [None]
  - CONDITION AGGRAVATED [None]
  - ALTERED STATE OF CONSCIOUSNESS [None]
  - BILIRUBIN CONJUGATED INCREASED [None]
